FAERS Safety Report 4685620-1 (Version None)
Quarter: 2005Q2

REPORT INFORMATION
  Report Type: 
  Country: None (occurrence: None)
  Receive Date: 20050608
  Receipt Date: 20050603
  Transmission Date: 20051028
  Serious: Yes (Disabling)
  Sender: FDA-Public Use
  Company Number: US-MERCK-0506USA00828

PATIENT
  Age: 52 Year
  Sex: Female

DRUGS (8)
  1. FOSAMAX [Suspect]
     Indication: OSTEOPOROSIS
     Route: 048
     Dates: start: 20050501
  2. OS-CAL [Concomitant]
     Route: 065
  3. PREMARIN [Concomitant]
     Route: 065
  4. NEXIUM [Concomitant]
     Route: 065
  5. RANITIDINE [Concomitant]
     Route: 065
  6. SINGULAIR [Concomitant]
     Route: 065
  7. ADVAIR DISKUS 100/50 [Concomitant]
     Route: 065
  8. ALBUTEROL [Concomitant]
     Route: 065

REACTIONS (8)
  - ABDOMINAL DISTENSION [None]
  - ASTHENIA [None]
  - CONSTIPATION [None]
  - DIARRHOEA [None]
  - FOREIGN BODY TRAUMA [None]
  - NAUSEA [None]
  - PRURITUS [None]
  - VOMITING [None]
